FAERS Safety Report 19419615 (Version 1)
Quarter: 2021Q2

REPORT INFORMATION
  Report Type: Other
  Country: US (occurrence: US)
  Receive Date: 20210615
  Receipt Date: 20210615
  Transmission Date: 20210717
  Serious: Yes (Other)
  Sender: FDA-Public Use
  Company Number: US-ROCHE-2847154

PATIENT

DRUGS (3)
  1. CAPECITABINE. [Suspect]
     Active Substance: CAPECITABINE
     Indication: TRIPLE NEGATIVE BREAST CANCER
     Dosage: 7 DAYS ON 7 DAYS OFF
     Route: 048
  2. IPATASERTIB. [Suspect]
     Active Substance: IPATASERTIB
     Indication: TRIPLE NEGATIVE BREAST CANCER
     Dosage: 7 DAYS OFF
     Route: 048
  3. ATEZOLIZUMAB. [Suspect]
     Active Substance: ATEZOLIZUMAB
     Indication: TRIPLE NEGATIVE BREAST CANCER
     Route: 042

REACTIONS (1)
  - Rash maculo-papular [Unknown]
